FAERS Safety Report 11582954 (Version 1)
Quarter: 2015Q4

REPORT INFORMATION
  Report Type: Spontaneous
  Country: FR (occurrence: FR)
  Receive Date: 20151001
  Receipt Date: 20151001
  Transmission Date: 20160304
  Serious: Yes (Life-Threatening, Hospitalization)
  Sender: FDA-Public Use
  Company Number: FR-ROCHE-1638355

PATIENT
  Age: 39 Year
  Sex: Male

DRUGS (30)
  1. DANATROL [Concomitant]
     Active Substance: DANAZOL
     Route: 065
     Dates: start: 20150605
  2. SPECIAFOLDINE [Concomitant]
     Active Substance: FOLIC ACID
     Dosage: 2 TABS IN THE MORNING
     Route: 065
  3. STILNOX [Concomitant]
     Active Substance: ZOLPIDEM TARTRATE
     Dosage: 0.5 TAB AT BEDTIME
     Route: 065
  4. INEXIUM [Concomitant]
     Active Substance: ESOMEPRAZOLE
     Dosage: 1 TAB EVENING
     Route: 065
  5. ECULIZUMAB [Concomitant]
     Active Substance: ECULIZUMAB
     Route: 065
     Dates: start: 20150615
  6. POSACONAZOLE [Concomitant]
     Active Substance: POSACONAZOLE
     Dosage: 3 TABS IN MORNING
     Route: 065
  7. BACTRIM [Concomitant]
     Active Substance: SULFAMETHOXAZOLE\TRIMETHOPRIM
     Route: 065
  8. GRANOCYTE [Concomitant]
     Active Substance: LENOGRASTIM
     Route: 065
     Dates: start: 20150605
  9. LASILIX [Concomitant]
     Active Substance: FUROSEMIDE
     Dosage: 2 TABS MORNING
     Route: 065
  10. NEORAL [Concomitant]
     Active Substance: CYCLOSPORINE
     Route: 065
     Dates: end: 20150424
  11. ZELITREX [Concomitant]
     Active Substance: VALACYCLOVIR HYDROCHLORIDE
     Dosage: 1 TAB IN EVENING
     Route: 065
  12. MABTHERA [Suspect]
     Active Substance: RITUXIMAB
     Dosage: N 2/4
     Route: 042
     Dates: start: 20150220, end: 20150531
  13. ECULIZUMAB [Concomitant]
     Active Substance: ECULIZUMAB
     Route: 065
     Dates: start: 20150608
  14. ECULIZUMAB [Concomitant]
     Active Substance: ECULIZUMAB
     Route: 065
     Dates: start: 20150629, end: 20150709
  15. GRANOCYTE [Concomitant]
     Active Substance: LENOGRASTIM
     Route: 065
     Dates: start: 20150605
  16. ZARZIO [Concomitant]
     Active Substance: FILGRASTIM
     Dosage: 30 MIU, 1 SUBCUTANEOUS INJECTION MORNING ON MONDAYS WEDNESDAYS AND FRIDAYS
     Route: 058
  17. KEPPRA [Concomitant]
     Active Substance: LEVETIRACETAM
     Dosage: 1 TAB MORNING AND EVENING
     Route: 065
  18. METHOTREXATE [Concomitant]
     Active Substance: METHOTREXATE
     Route: 037
     Dates: start: 20140915, end: 20141008
  19. ECULIZUMAB [Concomitant]
     Active Substance: ECULIZUMAB
     Route: 065
     Dates: start: 20150531
  20. ECULIZUMAB [Concomitant]
     Active Substance: ECULIZUMAB
     Route: 065
     Dates: start: 20150622
  21. ATARAX [Concomitant]
     Active Substance: HYDROXYZINE\HYDROXYZINE HYDROCHLORIDE
     Dosage: 1 TAB EVENING
     Route: 065
  22. LERCANIDIPINE [Concomitant]
     Active Substance: LERCANIDIPINE
     Dosage: 2 TABS EVENING
     Route: 065
  23. DIFFU K [Concomitant]
     Active Substance: POTASSIUM CHLORIDE
     Dosage: 2 TABS/DAY
     Route: 065
  24. ARACYTINE [Concomitant]
     Active Substance: CYTARABINE
     Dosage: N 1
     Route: 065
     Dates: start: 20140725
  25. ARACYTINE [Concomitant]
     Active Substance: CYTARABINE
     Dosage: N 2
     Route: 065
     Dates: start: 20140901
  26. ENDOXAN [Concomitant]
     Active Substance: CYCLOPHOSPHAMIDE
     Route: 065
     Dates: start: 20141114
  27. MABTHERA [Suspect]
     Active Substance: RITUXIMAB
     Indication: ACUTE MYELOID LEUKAEMIA
     Dosage: N 1/4
     Route: 042
     Dates: start: 20150213
  28. CORTANCYL [Concomitant]
     Active Substance: PREDNISONE
     Dosage: 2.5 TABS MORNING
     Route: 065
  29. ATENOLOL. [Concomitant]
     Active Substance: ATENOLOL
     Dosage: 1 TAB MORNING
     Route: 065
  30. ORACILLINE [Concomitant]
     Active Substance: PENICILLIN V
     Dosage: 1 MIU, 1 TAB MORNING AND EVENING
     Route: 065

REACTIONS (1)
  - Progressive multifocal leukoencephalopathy [Not Recovered/Not Resolved]

NARRATIVE: CASE EVENT DATE: 20150831
